FAERS Safety Report 8614919-9 (Version None)
Quarter: 2012Q3

REPORT INFORMATION
  Report Type: 
  Country: None (occurrence: None)
  Receive Date: 20120823
  Receipt Date: 20120810
  Transmission Date: 20120928
  Serious: Yes (Other)
  Sender: FDA-Public Use
  Company Number: JP-VERTEX PHARMACEUTICAL INC.-2012-019679

PATIENT
  Age: 57 Year
  Sex: Male

DRUGS (5)
  1. PEG-INTRON [Concomitant]
     Dosage: 1.5 A?G/KG, UNK
     Route: 058
     Dates: start: 20120612
  2. MICARDIS [Concomitant]
     Dosage: 1.5 UNK, UNK
     Route: 048
  3. REBETOL [Concomitant]
     Dosage: 800 MG, UNK
     Route: 048
     Dates: start: 20120612
  4. VX-950 [Suspect]
     Indication: HEPATITIS C
     Dosage: 2250 MG, UNK
     Route: 048
     Dates: start: 20120612, end: 20120613
  5. SELBEX [Concomitant]
     Dosage: 3 UNK, UNK
     Route: 048
     Dates: start: 20120611

REACTIONS (1)
  - RASH GENERALISED [None]
